FAERS Safety Report 19967630 (Version 1)
Quarter: 2021Q4

REPORT INFORMATION
  Report Type: Spontaneous
  Country: US (occurrence: US)
  Receive Date: 20211018
  Receipt Date: 20211018
  Transmission Date: 20220303
  Serious: Yes (unspecified)
  Sender: FDA-Public Use
  Company Number: None

PATIENT
  Age: 61 Year
  Sex: Male
  Weight: 78.5 kg

DRUGS (1)
  1. SUGAMMADEX [Suspect]
     Active Substance: SUGAMMADEX
     Indication: Neuromuscular blockade reversal
     Dosage: ?          OTHER FREQUENCY:ONCE IN OR;
     Route: 040
     Dates: start: 20211015, end: 20211015

REACTIONS (2)
  - Anaphylactic reaction [None]
  - Haemodynamic instability [None]

NARRATIVE: CASE EVENT DATE: 20211015
